FAERS Safety Report 5792057-0 (Version None)
Quarter: 2008Q2

REPORT INFORMATION
  Report Type: 
  Country: None (occurrence: None)
  Receive Date: 20080626
  Receipt Date: 20080623
  Transmission Date: 20081010
  Serious: Yes (Death, Other)
  Sender: FDA-Public Use
  Company Number: PHEH2007US16192

PATIENT
  Sex: Male
  Weight: 65.306 kg

DRUGS (8)
  1. EXJADE [Suspect]
     Indication: IRON OVERLOAD
     Dosage: 1000 MG, QD
     Route: 048
     Dates: start: 20070604, end: 20071228
  2. VIDAZA [Concomitant]
     Dosage: 0.25 MG, 5X/WK / MO
     Route: 058
     Dates: start: 20070212, end: 20071227
  3. ARANESP [Concomitant]
     Indication: MYELODYSPLASTIC SYNDROME
     Dosage: 0.3 MG, Q1-2 WEEKS
     Route: 058
     Dates: start: 20060822, end: 20071224
  4. NEULASTA [Concomitant]
     Indication: MYELODYSPLASTIC SYNDROME
     Dosage: 6 MG, QMO
     Route: 058
     Dates: start: 20060921, end: 20071203
  5. RED BLOOD CELLS [Concomitant]
     Dosage: UNK, PRN
     Route: 042
     Dates: start: 20070219, end: 20071228
  6. PROCRIT [Concomitant]
     Dates: start: 20070212, end: 20071227
  7. NEUPOGEN [Concomitant]
     Dates: start: 20050919, end: 20071224
  8. PREDNISONE [Concomitant]
     Dosage: 10 MG, UNK

REACTIONS (21)
  - BLOOD GLUCOSE INCREASED [None]
  - BLOOD UREA INCREASED [None]
  - COUGH [None]
  - DYSPHONIA [None]
  - FATIGUE [None]
  - HAEMATOCRIT DECREASED [None]
  - HAEMOGLOBIN DECREASED [None]
  - HERPES ZOSTER [None]
  - INJECTION SITE PAIN [None]
  - MYELODYSPLASTIC SYNDROME [None]
  - NASAL CONGESTION [None]
  - NASAL DISCOMFORT [None]
  - OSTEOARTHRITIS [None]
  - PAIN [None]
  - PLATELET COUNT DECREASED [None]
  - RASH [None]
  - RHINORRHOEA [None]
  - SERUM FERRITIN INCREASED [None]
  - SPUTUM ABNORMAL [None]
  - THROAT IRRITATION [None]
  - UPPER RESPIRATORY TRACT INFECTION [None]
